FAERS Safety Report 10267702 (Version 3)
Quarter: 2014Q3

REPORT INFORMATION
  Report Type: Spontaneous
  Country: AR (occurrence: AR)
  Receive Date: 20140630
  Receipt Date: 20140703
  Transmission Date: 20150326
  Serious: Yes (Death, Hospitalization)
  Sender: FDA-Public Use
  Company Number: AR-PFIZER INC-2014117680

PATIENT
  Age: 73 Year
  Sex: Female
  Weight: 48 kg

DRUGS (1)
  1. SUTENT [Suspect]
     Active Substance: SUNITINIB MALATE
     Indication: METASTATIC RENAL CELL CARCINOMA
     Dosage: 50 MG, CYCLIC (1X/DAY 4 WEEKS ON, 2 WEEKS OFF SCHEME)
     Dates: start: 20140317

REACTIONS (8)
  - Decreased appetite [Recovering/Resolving]
  - Tooth disorder [Recovering/Resolving]
  - Mobility decreased [Recovering/Resolving]
  - Bronchitis [Recovering/Resolving]
  - Pneumonia [Fatal]
  - Weight decreased [Recovering/Resolving]
  - Asthenia [Recovering/Resolving]
  - Oral pain [Recovering/Resolving]

NARRATIVE: CASE EVENT DATE: 20140401
